FAERS Safety Report 6026609-X (Version None)
Quarter: 2008Q4

REPORT INFORMATION
  Report Type: 
  Country: None (occurrence: None)
  Receive Date: 20081231
  Receipt Date: 20081216
  Transmission Date: 20090506
  Serious: Yes (Hospitalization)
  Sender: FDA-Public Use
  Company Number: US025027

PATIENT
  Age: 57 Year
  Sex: Male

DRUGS (16)
  1. FENTORA [Suspect]
     Indication: CANCER PAIN
     Dosage: 400 UG 400UG Q6HR AS NEEDED BUCCAL
     Route: 002
     Dates: start: 20080903, end: 20081004
  2. FENTORA [Suspect]
     Indication: CANCER PAIN
     Dosage: 800 UG 800UG Q5HR AS NEEDED BUCCAL
     Route: 002
     Dates: start: 20081004, end: 20081013
  3. FENTORA [Suspect]
     Indication: CANCER PAIN
     Dosage: 400 UG PRN BUCCAL
     Route: 002
     Dates: start: 20081016
  4. ERLOTINIB [Suspect]
     Indication: NON-SMALL CELL LUNG CANCER
     Dosage: 150 MG QD ORAL
     Route: 048
     Dates: start: 20080519
  5. PLACEBO [Suspect]
     Indication: NON-SMALL CELL LUNG CANCER
     Dosage: 37.5 MG QD ORAL
     Route: 048
     Dates: start: 20080519
  6. COMPAZINE /00013302/ [Concomitant]
  7. SENOKOT /00142201/ [Concomitant]
  8. FLEET ENEMA /00103901/ [Concomitant]
  9. GABAPENTIN [Concomitant]
  10. OMEPRAZOLE [Concomitant]
  11. OXYCONTIN [Concomitant]
  12. PERCOCET [Concomitant]
  13. METHADONE HCL [Concomitant]
  14. XANAX [Concomitant]
  15. REMERON [Concomitant]
  16. MARINOL [Concomitant]

REACTIONS (6)
  - ABDOMINAL PAIN [None]
  - CHEST PAIN [None]
  - DRUG PRESCRIBING ERROR [None]
  - FAECALOMA [None]
  - NAUSEA [None]
  - VOMITING [None]
